FAERS Safety Report 8125515-4 (Version None)
Quarter: 2012Q1

REPORT INFORMATION
  Report Type: 
  Country: None (occurrence: None)
  Receive Date: 20120209
  Receipt Date: 20120202
  Transmission Date: 20120608
  Serious: Yes (Disabling, Other)
  Sender: FDA-Public Use
  Company Number: PHHY2012BR007272

PATIENT
  Sex: Female
  Weight: 160 kg

DRUGS (2)
  1. LEVOID [Concomitant]
     Indication: THYROID DISORDER
  2. SIMVASTATIN [Suspect]
     Dosage: 20 MG, QD
     Route: 048

REACTIONS (7)
  - JOINT SWELLING [None]
  - BLOOD URINE PRESENT [None]
  - GAIT DISTURBANCE [None]
  - MUSCULOSKELETAL PAIN [None]
  - RENAL DISORDER [None]
  - PAIN [None]
  - OEDEMA PERIPHERAL [None]
